FAERS Safety Report 4886490-9 (Version None)
Quarter: 2006Q1

REPORT INFORMATION
  Report Type: 
  Country: None (occurrence: None)
  Receive Date: 20060118
  Receipt Date: 20060109
  Transmission Date: 20060701
  Serious: Yes (Hospitalization)
  Sender: FDA-Public Use
  Company Number: HQWYE945812DEC05

PATIENT
  Age: 56 Year
  Sex: Male
  Weight: 111.5 kg

DRUGS (11)
  1. RAPAMUNE [Suspect]
     Indication: PROPHYLAXIS AGAINST TRANSPLANT REJECTION
     Dosage: 3 MG 1X PER 1 DAY, ORAL
     Route: 048
     Dates: start: 20021106, end: 20051221
  2. ASPIRIN [Concomitant]
  3. SODIUM BICARBONATE IN PLASTIC CONTAINER [Concomitant]
  4. ALBUTEROL [Concomitant]
  5. LASIX [Concomitant]
  6. METOPROLOL (METOPROLOL) [Concomitant]
  7. LISINOPRIL [Concomitant]
  8. ATORVASTATIN CALCIUM [Concomitant]
  9. EZETROL (EZETIMIBE) [Concomitant]
  10. MYCOPHENOLATE MOFETIL (MYCOPHENOLATE MOFETIL) [Concomitant]
  11. PREDNISONE [Concomitant]

REACTIONS (3)
  - DRUG TOXICITY [None]
  - DYSPNOEA [None]
  - INTERSTITIAL LUNG DISEASE [None]
